FAERS Safety Report 16324115 (Version 1)
Quarter: 2019Q2

REPORT INFORMATION
  Report Type: Spontaneous
  Country: IE (occurrence: IE)
  Receive Date: 20190517
  Receipt Date: 20190517
  Transmission Date: 20190711
  Serious: Yes (Other)
  Sender: FDA-Public Use
  Company Number: IE-TEVA-2019-IE-1050759

PATIENT
  Age: 69 Year
  Sex: Male

DRUGS (3)
  1. PROPOFOL (GENERIC) [Suspect]
     Active Substance: PROPOFOL
     Indication: ANAESTHESIA
     Dosage: ONE TIME
     Route: 042
     Dates: start: 20190214, end: 20190214
  2. FENTANYL (GENERIC) [Suspect]
     Active Substance: FENTANYL
     Indication: ANAESTHESIA
     Dosage: ONE TIME
     Route: 042
     Dates: start: 20190214
  3. ROCURONIUM [Suspect]
     Active Substance: ROCURONIUM BROMIDE
     Indication: ANAESTHESIA
     Dosage: ONE TIME
     Route: 042
     Dates: start: 20190214, end: 20190214

REACTIONS (3)
  - Rash erythematous [Recovered/Resolved]
  - Anaphylactic reaction [Recovered/Resolved]
  - Hypotension [Recovered/Resolved]

NARRATIVE: CASE EVENT DATE: 20190214
